FAERS Safety Report 11803222 (Version 1)
Quarter: 2015Q4

REPORT INFORMATION
  Report Type: Spontaneous
  Country: US (occurrence: US)
  Receive Date: 20151204
  Receipt Date: 20151204
  Transmission Date: 20160305
  Serious: Yes (Life-Threatening)
  Sender: FDA-Public Use
  Company Number: US-STANDARD HOMEOPATHIC COMPANY-1045081

PATIENT
  Age: 3 Month
  Sex: Male

DRUGS (1)
  1. BABY TEETHING [Suspect]
     Active Substance: ATROPA BELLADONNA\CALCIUM PHOSPHATE\CHAMOMILE\COFFEA ARABICA FRUIT
     Indication: PAIN
     Route: 048

REACTIONS (4)
  - Unresponsive to stimuli [Unknown]
  - Respiratory arrest [Unknown]
  - Cyanosis [None]
  - Cardio-respiratory arrest [None]

NARRATIVE: CASE EVENT DATE: 20151125
